FAERS Safety Report 5401210-7 (Version None)
Quarter: 2007Q3

REPORT INFORMATION
  Report Type: 
  Country: None (occurrence: None)
  Receive Date: 20070726
  Receipt Date: 20070720
  Transmission Date: 20080115
  Serious: Yes (Hospitalization)
  Sender: FDA-Public Use
  Company Number: 2007SP014176

PATIENT
  Age: 74 Year
  Sex: Male
  Weight: 52 kg

DRUGS (1)
  1. TEMOZOLOMIDE [Suspect]
     Indication: GLIOSARCOMA
     Dosage: 75 MG/M2; QD; PO
     Route: 048
     Dates: start: 20070510, end: 20070622

REACTIONS (5)
  - BRONCHITIS PNEUMOCOCCAL [None]
  - CHRONIC OBSTRUCTIVE PULMONARY DISEASE [None]
  - CONDITION AGGRAVATED [None]
  - DEHYDRATION [None]
  - DYSPHAGIA [None]
